FAERS Safety Report 12978126 (Version 1)
Quarter: 2016Q4

REPORT INFORMATION
  Report Type: Spontaneous
  Country: US (occurrence: US)
  Receive Date: 20161123
  Receipt Date: 20161123
  Transmission Date: 20170207
  Serious: Yes (Hospitalization)
  Sender: FDA-Public Use
  Company Number: None

PATIENT
  Age: 53 Year
  Sex: Female
  Weight: 101.24 kg

DRUGS (2)
  1. XARELTO [Suspect]
     Active Substance: RIVAROXABAN
     Indication: PULMONARY EMBOLISM
     Route: 048
     Dates: start: 20150721, end: 20160915
  2. XARELTO [Suspect]
     Active Substance: RIVAROXABAN
     Indication: DEEP VEIN THROMBOSIS
     Route: 048
     Dates: start: 20150721, end: 20160915

REACTIONS (7)
  - Pulmonary embolism [None]
  - Dyspnoea [None]
  - Deep vein thrombosis [None]
  - Pain [None]
  - Myalgia [None]
  - Limb discomfort [None]
  - Oedema peripheral [None]

NARRATIVE: CASE EVENT DATE: 20160916
